FAERS Safety Report 7219478-3 (Version None)
Quarter: 2011Q1

REPORT INFORMATION
  Report Type: 
  Country: None (occurrence: None)
  Receive Date: 20110111
  Receipt Date: 20110111
  Transmission Date: 20110831
  Serious: Yes (Hospitalization, Other)
  Sender: FDA-Public Use
  Company Number: None

PATIENT
  Sex: Female
  Weight: 63.05 kg

DRUGS (2)
  1. RU-486 [Suspect]
     Indication: ABORTION INDUCED
     Dates: start: 20060324, end: 20060324
  2. COPPER T [Suspect]
     Indication: CONTRACEPTION
     Dates: start: 20060415, end: 20101120

REACTIONS (6)
  - SPEECH DISORDER [None]
  - VERTIGO [None]
  - DRUG EXPOSURE DURING PREGNANCY [None]
  - ASTHMA [None]
  - CONVULSION [None]
  - DEVICE RELATED INFECTION [None]
